FAERS Safety Report 8301166-3 (Version None)
Quarter: 2012Q2

REPORT INFORMATION
  Report Type: 
  Country: None (occurrence: None)
  Receive Date: 20120420
  Receipt Date: 20120416
  Transmission Date: 20120825
  Serious: Yes (Death, Hospitalization)
  Sender: FDA-Public Use
  Company Number: PHHY2012US032900

PATIENT
  Age: 86 Year
  Sex: Female

DRUGS (2)
  1. CARBAMAZEPINE [Suspect]
     Dosage: 100 MG, DAILY
  2. HYDRALAZINE HCL [Suspect]
     Indication: HYPERTENSION
     Dosage: 100 MG, TID

REACTIONS (27)
  - PERIORBITAL OEDEMA [None]
  - DERMATITIS [None]
  - BLISTER [None]
  - C-REACTIVE PROTEIN INCREASED [None]
  - RASH ERYTHEMATOUS [None]
  - BLOOD CREATININE DECREASED [None]
  - CONJUNCTIVITIS [None]
  - ERYTHEMA [None]
  - RED BLOOD CELL SEDIMENTATION RATE INCREASED [None]
  - HAEMATURIA [None]
  - ANTINUCLEAR ANTIBODY POSITIVE [None]
  - ORAL MUCOSA EROSION [None]
  - PYREXIA [None]
  - HAEMOGLOBIN DECREASED [None]
  - ANTIBODY TEST POSITIVE [None]
  - LEUKOCYTOSIS [None]
  - PERIVASCULAR DERMATITIS [None]
  - SKIN LESION [None]
  - ANTINEUTROPHIL CYTOPLASMIC ANTIBODY POSITIVE [None]
  - DEATH [None]
  - GINGIVAL EROSION [None]
  - PAIN IN EXTREMITY [None]
  - EYE DISCHARGE [None]
  - PROTEINURIA [None]
  - ELECTROPHORESIS PROTEIN ABNORMAL [None]
  - ACUTE FEBRILE NEUTROPHILIC DERMATOSIS [None]
  - MALAISE [None]
